FAERS Safety Report 6031912-3 (Version None)
Quarter: 2009Q1

REPORT INFORMATION
  Report Type: 
  Country: None (occurrence: None)
  Receive Date: 20090108
  Receipt Date: 20081231
  Transmission Date: 20090719
  Serious: Yes (Death, Life-Threatening, Other)
  Sender: FDA-Public Use
  Company Number: CA-ROCHE-603778

PATIENT
  Sex: Female

DRUGS (2)
  1. PEG-INTERFERON ALFA 2A (RO 25-8310) [Suspect]
     Indication: HEPATITIS C
     Route: 058
     Dates: start: 20080902, end: 20081201
  2. RIBAVIRIN [Suspect]
     Indication: HEPATITIS C
     Route: 048
     Dates: start: 20080902, end: 20081201

REACTIONS (5)
  - BRAIN INJURY [None]
  - CARDIAC ARREST [None]
  - MYOCARDIAL INFARCTION [None]
  - PANCYTOPENIA [None]
  - VENTRICULAR FIBRILLATION [None]
